FAERS Safety Report 9244739 (Version 1)
Quarter: 2013Q2

REPORT INFORMATION
  Report Type: Spontaneous
  Country: BR (occurrence: BR)
  Receive Date: 20130422
  Receipt Date: 20130422
  Transmission Date: 20140414
  Serious: Yes (Hospitalization, Other)
  Sender: FDA-Public Use
  Company Number: BR-PFIZER INC-2013123238

PATIENT
  Age: 84 Year
  Sex: Female
  Weight: 78.6 kg

DRUGS (8)
  1. NEURONTIN [Suspect]
     Dosage: 800 MG DAILY
     Route: 048
     Dates: start: 20130213, end: 20130217
  2. CARVEDILOL [Concomitant]
     Dosage: 6.25 MG, UNK
     Route: 048
  3. MONOCORDIL [Concomitant]
     Dosage: 20 MG, UNK
     Route: 048
  4. JANUVIA [Concomitant]
     Dosage: 100 MG, UNK
     Route: 048
  5. LASIX [Concomitant]
     Dosage: 20 MG, UNK
     Route: 048
  6. SYNTHROID [Concomitant]
     Dosage: 75 UG, UNK
     Route: 048
  7. PLAVIX [Concomitant]
     Dosage: 75 MG, UNK
     Route: 048
  8. SERTRALINE [Concomitant]
     Dosage: 50 MG, UNK
     Route: 048

REACTIONS (4)
  - Depressed level of consciousness [Recovered/Resolved]
  - Fatigue [Recovered/Resolved]
  - Somnolence [Recovered/Resolved]
  - Lethargy [Recovered/Resolved]
